FAERS Safety Report 13642756 (Version 2)
Quarter: 2017Q3

REPORT INFORMATION
  Report Type: Report from Study
  Country: CL (occurrence: CL)
  Receive Date: 20170612
  Receipt Date: 20170720
  Transmission Date: 20171127
  Serious: Yes (Other)
  Sender: FDA-Public Use
  Company Number: CL-EMD SERONO-E2B_80070998

PATIENT
  Age: 12 Year
  Sex: Female

DRUGS (1)
  1. SAIZEN [Suspect]
     Active Substance: SOMATROPIN
     Indication: GROWTH HORMONE DEFICIENCY
     Route: 058
     Dates: start: 20150507, end: 201703

REACTIONS (2)
  - Hand fracture [Unknown]
  - Epiphyses premature fusion [Unknown]

NARRATIVE: CASE EVENT DATE: 201703
